FAERS Safety Report 17498338 (Version 1)
Quarter: 2020Q1

REPORT INFORMATION
  Report Type: Spontaneous
  Country: US (occurrence: US)
  Receive Date: 20200304
  Receipt Date: 20200304
  Transmission Date: 20200409
  Serious: No
  Sender: FDA-Public Use
  Company Number: US-TARO-2019TAR00223

PATIENT
  Sex: Female

DRUGS (1)
  1. NYSTATIN CREAM USP 100,000 UNITS/G [Suspect]
     Active Substance: NYSTATIN
     Indication: STOMATITIS
     Dosage: UNK
     Route: 048
     Dates: start: 201903

REACTIONS (4)
  - Nausea [Unknown]
  - Off label use [Unknown]
  - Retching [Unknown]
  - Product prescribing error [Unknown]

NARRATIVE: CASE EVENT DATE: 201903
